FAERS Safety Report 8507750-6 (Version None)
Quarter: 2012Q3

REPORT INFORMATION
  Report Type: 
  Country: None (occurrence: None)
  Receive Date: 20120709
  Receipt Date: 20120709
  Transmission Date: 20120928
  Serious: No
  Sender: FDA-Public Use
  Company Number: None

PATIENT

DRUGS (2)
  1. DEXTROSE 70% [Suspect]
     Dosage: INJECTION 70 % IV BAG 500 ML
     Route: 042
  2. DEXTROSE 50% [Suspect]
     Dosage: INJECTABLE INJECTION 50% IV BAG 500 ML
     Route: 042

REACTIONS (2)
  - CIRCUMSTANCE OR INFORMATION CAPABLE OF LEADING TO MEDICATION ERROR [None]
  - PRODUCT OUTER PACKAGING ISSUE [None]
